FAERS Safety Report 20659191 (Version 3)
Quarter: 2022Q2

REPORT INFORMATION
  Report Type: Spontaneous
  Country: RU (occurrence: RU)
  Receive Date: 20220331
  Receipt Date: 20220531
  Transmission Date: 20220721
  Serious: Yes (Hospitalization)
  Sender: FDA-Public Use
  Company Number: RU-NOVARTISPH-NVSC2022RU072759

PATIENT
  Sex: Female

DRUGS (2)
  1. METHOTREXATE [Suspect]
     Active Substance: METHOTREXATE
     Indication: Pustular psoriasis
     Dosage: SYRINGE
     Route: 065
     Dates: start: 20220321
  2. METHOTREXATE [Suspect]
     Active Substance: METHOTREXATE
     Dosage: SYRINGE
     Route: 065
     Dates: start: 20220406

REACTIONS (7)
  - Blood pressure increased [Recovered/Resolved]
  - Bone pain [Recovered/Resolved]
  - Visual impairment [Recovered/Resolved]
  - Diarrhoea [Recovered/Resolved]
  - Vomiting [Recovered/Resolved]
  - Malaise [Unknown]
  - Product colour issue [Unknown]

NARRATIVE: CASE EVENT DATE: 20220321
